FAERS Safety Report 16793503 (Version 1)
Quarter: 2019Q3

REPORT INFORMATION
  Report Type: Spontaneous
  Country: US (occurrence: US)
  Receive Date: 20190911
  Receipt Date: 20190911
  Transmission Date: 20191005
  Serious: No
  Sender: FDA-Public Use
  Company Number: US-JNJFOC-20190835068

PATIENT
  Sex: Female
  Weight: 78.54 kg

DRUGS (1)
  1. TYLENOL REGULAR STRENGTH [Suspect]
     Active Substance: ACETAMINOPHEN
     Indication: PAIN
     Dosage: 2 - NOT MORE THAN 4000 MG PER DAY 3 TIMES A DAY
     Route: 048
     Dates: end: 20190825

REACTIONS (1)
  - Inappropriate schedule of product administration [Unknown]
